FAERS Safety Report 12839849 (Version 1)
Quarter: 2016Q4

REPORT INFORMATION
  Report Type: Spontaneous
  Country: GB (occurrence: GB)
  Receive Date: 20161012
  Receipt Date: 20161012
  Transmission Date: 20170207
  Serious: Yes (Hospitalization)
  Sender: FDA-Public Use
  Company Number: GB-NOVOPROD-513152

PATIENT
  Age: 10 Year
  Sex: Female

DRUGS (1)
  1. NOVORAPID [Suspect]
     Active Substance: INSULIN ASPART
     Indication: DIABETES MELLITUS
     Route: 058

REACTIONS (4)
  - Blood glucose increased [Unknown]
  - Product leakage [Unknown]
  - Post procedural infection [Unknown]
  - Blood ketone body present [Unknown]

NARRATIVE: CASE EVENT DATE: 20160817
